FAERS Safety Report 7047127-6 (Version None)
Quarter: 2010Q4

REPORT INFORMATION
  Report Type: 
  Country: None (occurrence: None)
  Receive Date: 20101012
  Receipt Date: 20100927
  Transmission Date: 20110411
  Serious: Yes (Hospitalization)
  Sender: FDA-Public Use
  Company Number: 2010P1001721

PATIENT
  Age: 44 Year
  Sex: Female

DRUGS (11)
  1. CEFOXITIN [Suspect]
     Indication: LUNG INFECTION
     Dosage: 400 MG/DAY
  2. CEFOXITIN [Suspect]
     Indication: MYCOBACTERIUM ABSCESSUS INFECTION
     Dosage: 400 MG/DAY
  3. CLARITHROMYCIN [Suspect]
     Indication: LUNG INFECTION
     Dosage: 1000 MG/DAY
  4. CLARITHROMYCIN [Suspect]
     Indication: MYCOBACTERIUM ABSCESSUS INFECTION
     Dosage: 1000 MG/DAY
  5. AMIKACIN [Suspect]
     Indication: LUNG INFECTION
     Dosage: 15 MG/KG/DAY
  6. AMIKACIN [Suspect]
     Indication: MYCOBACTERIUM ABSCESSUS INFECTION
     Dosage: 15 MG/KG/DAY
  7. ETHAMBUTOL HYDROCHLORIDE [Concomitant]
  8. ISONIAZID [Concomitant]
  9. PYRAZINAMIDE [Concomitant]
  10. RIFAMPIN [Concomitant]
  11. PRV MEDS [Concomitant]

REACTIONS (8)
  - ALANINE AMINOTRANSFERASE INCREASED [None]
  - ASPARTATE AMINOTRANSFERASE INCREASED [None]
  - CONDITION AGGRAVATED [None]
  - NO THERAPEUTIC RESPONSE [None]
  - PANCYTOPENIA [None]
  - PARADOXICAL DRUG REACTION [None]
  - PNEUMONIA [None]
  - PULMONARY TUBERCULOSIS [None]
